FAERS Safety Report 9643674 (Version 2)
Quarter: 2013Q4

REPORT INFORMATION
  Report Type: Spontaneous
  Country: BR (occurrence: BR)
  Receive Date: 20131024
  Receipt Date: 20131024
  Transmission Date: 20140711
  Serious: Yes (Hospitalization, Other)
  Sender: FDA-Public Use
  Company Number: PHHY2013BR091046

PATIENT
  Sex: Female
  Weight: 56 kg

DRUGS (6)
  1. DIOVAN [Suspect]
     Indication: HYPERTENSION
     Dosage: UNK UKN, UNK
     Route: 048
  2. RIVOTRIL [Suspect]
     Indication: DEPRESSION
     Dosage: TO 5 FROM 10 DROPS, DAILY
     Route: 048
     Dates: start: 201212
  3. RIVOTRIL [Suspect]
     Indication: SLEEP DISORDER
  4. NEBILET [Suspect]
     Indication: HYPERTENSION
     Dosage: 1 DF (5 MG), DAILY
     Route: 048
  5. NOVANLO [Suspect]
     Indication: HYPERTENSION
     Dosage: 1 DF (10 MG), DAILY
     Route: 048
  6. ASPIRIN ^BAYER^ [Suspect]
     Indication: ANTICOAGULANT THERAPY
     Dosage: 1 DF, DAILY
     Route: 048

REACTIONS (3)
  - Blood pressure increased [Not Recovered/Not Resolved]
  - Depression [Not Recovered/Not Resolved]
  - Oedema peripheral [Recovered/Resolved]
